FAERS Safety Report 7502759-3 (Version None)
Quarter: 2011Q2

REPORT INFORMATION
  Report Type: 
  Country: None (occurrence: None)
  Receive Date: 20110525
  Receipt Date: 20110519
  Transmission Date: 20111010
  Serious: Yes (Death, Hospitalization)
  Sender: FDA-Public Use
  Company Number: IN-PFIZER INC-HQ3948220NOV2000

PATIENT
  Age: 59 Year
  Sex: Female

DRUGS (10)
  1. DERIPHYLLIN [Concomitant]
     Route: 048
  2. SINTROM [Interacting]
     Indication: PRODUCT USED FOR UNKNOWN INDICATION
     Dosage: 2-3 MG ON ALTERNATE DAYS
     Route: 048
  3. FUROSEMIDE [Concomitant]
     Route: 048
  4. CORDARONE [Interacting]
     Indication: ATRIAL FIBRILLATION
     Dosage: 200.0 MG, 1X/DAY
     Route: 048
     Dates: start: 19980301, end: 19980101
  5. CORDARONE [Interacting]
     Indication: ATRIAL FLUTTER
  6. DIGOXIN [Concomitant]
     Route: 048
  7. SPIRONOLACTONE [Concomitant]
     Route: 048
  8. ALPRAZOLAM [Concomitant]
     Route: 048
  9. RANITIDINE [Concomitant]
     Route: 048
  10. AZITHROMYCIN [Suspect]
     Indication: UPPER RESPIRATORY TRACT INFECTION
     Dosage: 250.0 MG, 1X/DAY
     Route: 048
     Dates: start: 19980331

REACTIONS (3)
  - DRUG INTERACTION [None]
  - CARDIAC FAILURE CONGESTIVE [None]
  - HAEMORRHAGE [None]
